FAERS Safety Report 16717872 (Version 1)
Quarter: 2019Q3

REPORT INFORMATION
  Report Type: Spontaneous
  Country: IL (occurrence: IL)
  Receive Date: 20190819
  Receipt Date: 20190819
  Transmission Date: 20191005
  Serious: Yes (Disabling, Other)
  Sender: FDA-Public Use
  Company Number: IL-009507513-1908ISR006143

PATIENT
  Age: 61 Year
  Sex: Female

DRUGS (1)
  1. KEYTRUDA [Suspect]
     Active Substance: PEMBROLIZUMAB
     Indication: UTERINE CANCER
     Dosage: UNK

REACTIONS (5)
  - Product use in unapproved indication [Unknown]
  - Movement disorder [Unknown]
  - Malignant neoplasm progression [Unknown]
  - Asthenia [Unknown]
  - General physical health deterioration [Unknown]
